FAERS Safety Report 7420160-8 (Version None)
Quarter: 2011Q2

REPORT INFORMATION
  Report Type: 
  Country: None (occurrence: None)
  Receive Date: 20110418
  Receipt Date: 20110411
  Transmission Date: 20111010
  Serious: Yes (Hospitalization, Other)
  Sender: FDA-Public Use
  Company Number: RU-PFIZER INC-2011079362

PATIENT
  Age: 64 Year
  Sex: Female

DRUGS (6)
  1. DEXONA [Suspect]
     Route: 042
  2. THIOCTACID [Suspect]
  3. ACETYLSALICYLIC ACID [Concomitant]
     Dosage: UNK
     Dates: start: 20110125
  4. METFORMIN HYDROCHLORIDE [Concomitant]
     Indication: TYPE 2 DIABETES MELLITUS
     Dosage: UNK
  5. BLINDED THERAPY [Concomitant]
     Indication: TYPE 2 DIABETES MELLITUS
     Dosage: SAXAGLIPTIN/PLACEBO
     Dates: start: 20110128
  6. CELECOXIB [Suspect]

REACTIONS (4)
  - URTICARIA [None]
  - FACE OEDEMA [None]
  - PANCREATITIS CHRONIC [None]
  - ASTHMA [None]
